FAERS Safety Report 10386052 (Version 1)
Quarter: 2014Q1

REPORT INFORMATION
  Report Type: Spontaneous
  Country: US (occurrence: None)
  Receive Date: 20140306
  Receipt Date: 20140306
  Transmission Date: 20141002
  Serious: Yes (Hospitalization)
  Sender: FDA-Public Use
  Company Number: 163-21880-13120355

PATIENT
  Age: 66 Year
  Sex: Male

DRUGS (22)
  1. REVLIMID (LENALIDOMIDE) (25 MILLIGRAM, CAPSULES) [Suspect]
     Indication: PLASMA CELL MYELOMA
     Route: 048
     Dates: start: 201209
  2. PENICILLIN V POTASSIUM (PHENOXYMETHYLPENICILLIN POTASSIUM) [Concomitant]
  3. DAPSONE [Concomitant]
  4. ACYCLOVIR (ACICLOVIR) [Concomitant]
  5. WARFARIN SODIUM [Concomitant]
  6. SINGULAIR [Concomitant]
  7. TRILIPIX (CHOLINE FENOFIBRATE) [Concomitant]
  8. LOVAZA (OMEGA-3 MARINE TRIGLYCERIDES) [Concomitant]
  9. ASPIR-81 [Concomitant]
  10. CILOSTAZOL [Concomitant]
  11. AMLODIPINE BESYLATE (AMLODIPINE BESILATE) [Concomitant]
  12. CLONIDINE HCL (CLONIDINE HYDROCHLORIDE) [Concomitant]
  13. FUROSEMIDE [Concomitant]
  14. VALTURNA [Concomitant]
  15. BYSTOLIC (NEBIVOLOL HYDROCHLORIDE) [Concomitant]
  16. FOSINOPRIL SODIUM [Concomitant]
  17. SYNTHROID (LEVOTHYROXINE SODIUM [Concomitant]
  18. METFORMIN HCL (METFORMIN HYDROCHLORIDE) [Concomitant]
  19. GLIMEPIRIDE [Concomitant]
  20. ACTOS [Concomitant]
  21. BYETTA (EXENATIDE) [Concomitant]
  22. APIDRA (INSULIN GLULISINE) [Concomitant]

REACTIONS (2)
  - Renal failure [None]
  - Groin infection [None]
